FAERS Safety Report 14067412 (Version 2)
Quarter: 2017Q4

REPORT INFORMATION
  Report Type: Report from Study
  Country: CA (occurrence: CA)
  Receive Date: 20171010
  Receipt Date: 20171110
  Transmission Date: 20180321
  Serious: Yes (Other)
  Sender: FDA-Public Use
  Company Number: CA-TEVA-813630ACC

PATIENT
  Age: 68 Year
  Sex: Male

DRUGS (12)
  1. ALENDRONATE [Concomitant]
     Active Substance: ALENDRONATE SODIUM
     Dosage: STRENGTH: 70MG
  2. PLAVIX [Concomitant]
     Active Substance: CLOPIDOGREL BISULFATE
  3. PREDNISONE EYE DROP [Concomitant]
  4. CINQAIR [Suspect]
     Active Substance: RESLIZUMAB
     Indication: ASTHMA
     Dosage: 10 MILLIGRAM DAILY; STRENGTH: 10 MG/ML; LAST ADMINISTRATION DATE: 06-SEP-2017
     Route: 042
     Dates: start: 20170714
  5. PREDNISONE. [Suspect]
     Active Substance: PREDNISONE
     Dosage: NOW ON PREDNISONE 10MG
  6. PREDNISONE. [Suspect]
     Active Substance: PREDNISONE
     Dosage: DOSAGE WAS INCREASED TO 40MG FOR 7 DAYS
  7. QVAR [Concomitant]
     Active Substance: BECLOMETHASONE DIPROPIONATE
  8. MOMETASONE [Concomitant]
     Active Substance: MOMETASONE
  9. ROSUVASTATIN. [Concomitant]
     Active Substance: ROSUVASTATIN
  10. PREDNISONE. [Suspect]
     Active Substance: PREDNISONE
     Indication: PRODUCT USED FOR UNKNOWN INDICATION
     Dosage: REDUCED PREDNISONE DOSE TO 3MG TODAY THEN GO UP TO 4MG.
  11. VENTOLIN [Concomitant]
     Active Substance: ALBUTEROL SULFATE
  12. CYCLOVIR [Concomitant]

REACTIONS (4)
  - Cough [Not Recovered/Not Resolved]
  - Wheezing [Not Recovered/Not Resolved]
  - Chest discomfort [Not Recovered/Not Resolved]
  - Dyspnoea [Recovering/Resolving]

NARRATIVE: CASE EVENT DATE: 2017
